FAERS Safety Report 18279552 (Version 1)
Quarter: 2020Q3

REPORT INFORMATION
  Report Type: Spontaneous
  Country: US (occurrence: US)
  Receive Date: 20200917
  Receipt Date: 20200917
  Transmission Date: 20201103
  Serious: No
  Sender: FDA-Public Use
  Company Number: US-ADAMAS PHARMA, LLC-2020ADA01559

PATIENT
  Age: 65 Year
  Sex: Female
  Weight: 72.56 kg

DRUGS (5)
  1. GOCOVRI [Suspect]
     Active Substance: AMANTADINE
     Dosage: 274 MG, 1X/DAY, AT BEDTIME
     Dates: start: 20190122
  2. RYTARY [Concomitant]
     Active Substance: CARBIDOPA\LEVODOPA
  3. SYNTHROID [Concomitant]
     Active Substance: LEVOTHYROXINE SODIUM
  4. XADAGO [Concomitant]
     Active Substance: SAFINAMIDE MESYLATE
     Dosage: UNK
  5. GOCOVRI [Suspect]
     Active Substance: AMANTADINE
     Indication: PARKINSON^S DISEASE
     Dosage: 137 MG, 1X/DAY, AT BEDTIME
     Dates: start: 20190115, end: 20190121

REACTIONS (3)
  - Balance disorder [Not Recovered/Not Resolved]
  - Impaired driving ability [Not Recovered/Not Resolved]
  - Visual impairment [Recovering/Resolving]

NARRATIVE: CASE EVENT DATE: 201902
